FAERS Safety Report 20002432 (Version 3)
Quarter: 2022Q2

REPORT INFORMATION
  Report Type: Spontaneous
  Country: FR (occurrence: FR)
  Receive Date: 20211027
  Receipt Date: 20220420
  Transmission Date: 20220721
  Serious: Yes (Other)
  Sender: FDA-Public Use
  Company Number: FR-MYLANLABS-2021M1009769

PATIENT
  Age: 70 Year
  Sex: Male

DRUGS (1)
  1. LATANOPROST [Suspect]
     Active Substance: LATANOPROST
     Dosage: 1 DROP, 1X/DAY (LEFT EYE EVERY EVENING, QD)
     Route: 047

REACTIONS (6)
  - Arrhythmia [Unknown]
  - Wrong technique in product usage process [Recovered/Resolved]
  - Intentional product misuse [Unknown]
  - Atrial tachycardia [Recovered/Resolved]
  - Dizziness [Unknown]
  - Extrasystoles [Unknown]
